FAERS Safety Report 6420850-X (Version None)
Quarter: 2009Q4

REPORT INFORMATION
  Report Type: 
  Country: None (occurrence: None)
  Receive Date: 20091030
  Receipt Date: 20091023
  Transmission Date: 20100525
  Serious: Yes (Hospitalization)
  Sender: FDA-Public Use
  Company Number: AU-ALLERGAN-0913370US

PATIENT
  Age: 79 Year
  Sex: Male

DRUGS (3)
  1. ALPHAGAN [Suspect]
     Indication: GLAUCOMA
     Dosage: 1 GTT, BID
     Route: 047
     Dates: start: 20080926
  2. XALATAN [Suspect]
     Indication: GLAUCOMA
     Dosage: 1 GTT, QHS
     Route: 047
     Dates: start: 20080822
  3. CARDIZEM [Suspect]
     Dosage: UNK
     Dates: end: 20090801

REACTIONS (5)
  - ABDOMINAL PAIN [None]
  - ASCITES [None]
  - GASTROINTESTINAL DISORDER [None]
  - SPLENOMEGALY [None]
  - VOMITING [None]
